FAERS Safety Report 7161305-7 (Version None)
Quarter: 2010Q4

REPORT INFORMATION
  Report Type: 
  Country: None (occurrence: None)
  Receive Date: 20101210
  Receipt Date: 20101210
  Transmission Date: 20110411
  Serious: No
  Sender: FDA-Public Use
  Company Number: None

PATIENT
  Age: 60 Year
  Sex: Male
  Weight: 57 kg

DRUGS (1)
  1. QUETIAPINE [Suspect]
     Dosage: 600 MG AT BEDTIME PO
     Route: 048
     Dates: start: 20081002, end: 20101201

REACTIONS (1)
  - PARKINSONISM [None]
